FAERS Safety Report 15926582 (Version 2)
Quarter: 2019Q1

REPORT INFORMATION
  Report Type: Report from Study
  Country: ZA (occurrence: ZA)
  Receive Date: 20190206
  Receipt Date: 20190211
  Transmission Date: 20190417
  Serious: Yes (Life-Threatening)
  Sender: FDA-Public Use
  Company Number: ZA-SA-2019SA027375

PATIENT
  Age: 46 Year
  Sex: Female

DRUGS (6)
  1. OPTISULIN (INSULIN GLARGINE) [Suspect]
     Active Substance: INSULIN GLARGINE
     Dosage: UNK UNK, UNK
  2. GLUCOPHAGE [Concomitant]
     Active Substance: METFORMIN HYDROCHLORIDE
     Dosage: 1000 MG, BID((AFTER BREAKFAST )
     Dates: start: 20180101
  3. METFORMIN [Concomitant]
     Active Substance: METFORMIN HYDROCHLORIDE
     Dosage: 500 MG, QD(AFTER BREAKFAST )
     Dates: start: 20180101
  4. INSULIN GLARGINE [Suspect]
     Active Substance: INSULIN GLARGINE
     Dosage: 25 U, HS
     Dates: start: 20190125
  5. DIAMICRON [Concomitant]
     Active Substance: GLICLAZIDE
     Dosage: 60 MG, QD(AFTER BREAKFAST )
     Dates: start: 20180101
  6. DIAGLUCIDE [Concomitant]
     Active Substance: GLICLAZIDE
     Dosage: 60 MG, QD(AFTER BREAKFAST )
     Dates: start: 20180101

REACTIONS (7)
  - Fatigue [Not Recovered/Not Resolved]
  - Loss of consciousness [Recovered/Resolved]
  - Nausea [Not Recovered/Not Resolved]
  - Malaise [Recovered/Resolved]
  - Ageusia [Recovered/Resolved]
  - Dizziness [Recovered/Resolved]
  - Anxiety [Not Recovered/Not Resolved]
